FAERS Safety Report 10187366 (Version 1)
Quarter: 2014Q2

REPORT INFORMATION
  Report Type: Report from Study
  Country: FR (occurrence: FR)
  Receive Date: 20140522
  Receipt Date: 20140522
  Transmission Date: 20141212
  Serious: Yes (Hospitalization)
  Sender: FDA-Public Use
  Company Number: FR-ROCHE-1403951

PATIENT
  Sex: Male

DRUGS (23)
  1. RITUXIMAB [Suspect]
     Indication: RHEUMATOID ARTHRITIS
     Route: 065
     Dates: start: 20070301
  2. RITUXIMAB [Suspect]
     Route: 065
     Dates: start: 20070315
  3. RITUXIMAB [Suspect]
     Route: 065
     Dates: start: 20071011
  4. RITUXIMAB [Suspect]
     Route: 065
     Dates: start: 20071025
  5. RITUXIMAB [Suspect]
     Route: 065
     Dates: start: 20080514
  6. RITUXIMAB [Suspect]
     Route: 065
     Dates: start: 20080530
  7. RITUXIMAB [Suspect]
     Route: 065
     Dates: start: 20090904
  8. RITUXIMAB [Suspect]
     Route: 065
     Dates: start: 20100325
  9. RITUXIMAB [Suspect]
     Route: 065
     Dates: start: 20101122
  10. RITUXIMAB [Suspect]
     Route: 065
     Dates: start: 20111005
  11. RITUXIMAB [Suspect]
     Route: 065
     Dates: start: 20121010
  12. METHOTREXATE [Concomitant]
     Route: 065
     Dates: start: 20070315
  13. METHOTREXATE [Concomitant]
     Route: 065
     Dates: start: 20071025
  14. METHOTREXATE [Concomitant]
     Route: 065
     Dates: start: 20080530
  15. METHOTREXATE [Concomitant]
     Route: 065
     Dates: start: 20090904
  16. METHOTREXATE [Concomitant]
     Route: 065
     Dates: start: 20100325
  17. METHOTREXATE [Concomitant]
     Route: 065
     Dates: start: 20101122
  18. METHOTREXATE [Concomitant]
     Route: 065
     Dates: start: 20111005
  19. METHOTREXATE [Concomitant]
     Route: 065
     Dates: start: 20121010
  20. LEFLUNOMIDE [Concomitant]
     Route: 065
     Dates: start: 20070315
  21. CORTANCYL [Concomitant]
     Route: 065
     Dates: start: 20070315
  22. CORTANCYL [Concomitant]
     Route: 065
     Dates: start: 20071025
  23. CORTANCYL [Concomitant]
     Route: 065
     Dates: start: 20080530

REACTIONS (5)
  - Cyst [Recovered/Resolved]
  - Arthralgia [Recovered/Resolved]
  - Renal failure [Not Recovered/Not Resolved]
  - Tinea pedis [Recovered/Resolved]
  - Nasopharyngitis [Recovered/Resolved]
